FAERS Safety Report 18515392 (Version 2)
Quarter: 2020Q4

REPORT INFORMATION
  Report Type: Spontaneous
  Country: US (occurrence: US)
  Receive Date: 20201118
  Receipt Date: 20201215
  Transmission Date: 20210114
  Serious: No
  Sender: FDA-Public Use
  Company Number: US-LUNDBECK-DKLU3021859

PATIENT
  Age: 22 Year
  Sex: Female

DRUGS (2)
  1. NORTHERA [Suspect]
     Active Substance: DROXIDOPA
     Indication: MAST CELL ACTIVATION SYNDROME
     Route: 048
     Dates: start: 20200714
  2. NORTHERA [Suspect]
     Active Substance: DROXIDOPA
     Indication: EHLERS-DANLOS SYNDROME

REACTIONS (2)
  - Headache [Unknown]
  - Product use in unapproved indication [Unknown]
